FAERS Safety Report 18238466 (Version 6)
Quarter: 2021Q4

REPORT INFORMATION
  Report Type: Spontaneous
  Country: US (occurrence: US)
  Receive Date: 20200907
  Receipt Date: 20211013
  Transmission Date: 20220303
  Serious: No
  Sender: FDA-Public Use
  Company Number: US-PFIZER INC-2020343397

PATIENT
  Age: 31 Year
  Sex: Female

DRUGS (4)
  1. XELJANZ XR [Suspect]
     Active Substance: TOFACITINIB CITRATE
     Indication: Rheumatoid arthritis
     Dosage: 11 MG
     Dates: start: 20200806, end: 2020
  2. XELJANZ XR [Suspect]
     Active Substance: TOFACITINIB CITRATE
     Dosage: 11 MG
     Dates: start: 20200911
  3. XELJANZ XR [Suspect]
     Active Substance: TOFACITINIB CITRATE
     Dosage: 11 MG
     Dates: start: 20200915
  4. XELJANZ XR [Suspect]
     Active Substance: TOFACITINIB CITRATE
     Dosage: 11 MG
     Dates: start: 20210101

REACTIONS (10)
  - Drug ineffective [Unknown]
  - Stomatitis [Recovered/Resolved]
  - Headache [Recovered/Resolved]
  - Muscle strain [Recovered/Resolved]
  - Muscle tightness [Recovered/Resolved]
  - Limb injury [Recovered/Resolved]
  - Joint stiffness [Recovered/Resolved]
  - Diarrhoea [Recovered/Resolved]
  - Fatigue [Recovered/Resolved]
  - Migraine [Unknown]

NARRATIVE: CASE EVENT DATE: 20200101
